FAERS Safety Report 19064543 (Version 2)
Quarter: 2021Q2

REPORT INFORMATION
  Report Type: Report from Study
  Country: DE (occurrence: DE)
  Receive Date: 20210326
  Receipt Date: 20210406
  Transmission Date: 20210717
  Serious: Yes (Hospitalization)
  Sender: FDA-Public Use
  Company Number: DE-ROCHE-2792779

PATIENT
  Age: 62 Year
  Sex: Female
  Weight: 78 kg

DRUGS (1)
  1. OBINUTUZUMAB. [Suspect]
     Active Substance: OBINUTUZUMAB
     Indication: B-CELL LYMPHOMA
     Dosage: ON 11/MAR/2021, MOST RECENT DOSE OF OBINUTUZUMAB?CYCLE NUMBER PRIOR SAE W2.
     Route: 042
     Dates: start: 20210303

REACTIONS (2)
  - Focal dyscognitive seizures [Recovered/Resolved]
  - Syncope [Unknown]

NARRATIVE: CASE EVENT DATE: 20210317
